FAERS Safety Report 4417494-8 (Version None)
Quarter: 2004Q3

REPORT INFORMATION
  Report Type: 
  Country: None (occurrence: None)
  Receive Date: 20040804
  Receipt Date: 20040719
  Transmission Date: 20050211
  Serious: Yes (Hospitalization, Other)
  Sender: FDA-Public Use
  Company Number: 2004S1002107

PATIENT
  Age: 47 Year
  Sex: Male
  Weight: 83.9154 kg

DRUGS (2)
  1. ATENOLOL [Suspect]
     Indication: HYPERTENSION
     Dosage: 50MG, QD, ORAL
     Route: 048
     Dates: start: 20040601, end: 20040708
  2. ASPIRIN [Concomitant]

REACTIONS (4)
  - ANGINA PECTORIS [None]
  - ARRHYTHMIA [None]
  - BLOOD TEST ABNORMAL [None]
  - EXCITABILITY [None]
